FAERS Safety Report 7201581-5 (Version None)
Quarter: 2010Q4

REPORT INFORMATION
  Report Type: 
  Country: None (occurrence: None)
  Receive Date: 20101216
  Receipt Date: 20101206
  Transmission Date: 20110411
  Serious: Yes (Hospitalization)
  Sender: FDA-Public Use
  Company Number: 20073580

PATIENT
  Sex: Female

DRUGS (1)
  1. LIORESAL [Suspect]
     Indication: MUSCLE SPASTICITY
     Dosage: 0.04 MG, DAILY, INTRATHECAL
     Route: 037

REACTIONS (6)
  - CONDITION AGGRAVATED [None]
  - DRUG EFFECT DECREASED [None]
  - IMPLANT SITE EFFUSION [None]
  - INTRACRANIAL HYPOTENSION [None]
  - MUSCLE SPASTICITY [None]
  - SWELLING [None]
